FAERS Safety Report 9093862 (Version 1)
Quarter: 2013Q1

REPORT INFORMATION
  Report Type: Spontaneous
  Country: US (occurrence: None)
  Receive Date: 20130214
  Receipt Date: 20130214
  Transmission Date: 20140127
  Serious: Yes (Hospitalization)
  Sender: FDA-Public Use
  Company Number: None

PATIENT
  Age: 52 Year
  Sex: Female
  Weight: 58.06 kg

DRUGS (17)
  1. OLAPARIB [Suspect]
     Indication: LARYNGEAL CANCER
     Route: 048
     Dates: start: 20130118
  2. OLAPARIB 25 MG/TAB ASTRAZENECA [Concomitant]
     Route: 048
     Dates: start: 20130118
  3. CETUXIMAB (ERBITUX) [Concomitant]
  4. CLINDAMYCIN [Concomitant]
  5. DALTEPARIN [Concomitant]
  6. GUAIFENESIN [Concomitant]
  7. EMLA CREAM [Concomitant]
  8. MAGNESIUM SULFATE [Concomitant]
  9. SENNA FOR STOOL SOFTENING [Concomitant]
  10. VANCOMYCIN [Concomitant]
  11. DIPHENHYDRAMINE PRE-INFUSION [Concomitant]
  12. ACETAMINOPHEN WITH INFUSIONS [Concomitant]
  13. SOLUCORTEF IV WITH INFUSION [Concomitant]
  14. DEXAMOTHASONE [Concomitant]
  15. HYDRORYZINE HCL [Concomitant]
  16. ATIVAN [Concomitant]
  17. LIDOCAINE-DIPHENHYDRAMINE-AL-MAG-5IM MOUTHWASH [Concomitant]

REACTIONS (10)
  - Confusional state [None]
  - Hypotension [None]
  - Device related sepsis [None]
  - Anger [None]
  - Somnolence [None]
  - Tachypnoea [None]
  - Hypoxia [None]
  - Anxiety [None]
  - Insomnia [None]
  - Drug intolerance [None]
